FAERS Safety Report 7226524-X (Version None)
Quarter: 2011Q1

REPORT INFORMATION
  Report Type: 
  Country: None (occurrence: None)
  Receive Date: 20110114
  Receipt Date: 20110112
  Transmission Date: 20110831
  Serious: No
  Sender: FDA-Public Use
  Company Number: US-JNJFOC-20110103255

PATIENT
  Sex: Female

DRUGS (1)
  1. DURAGESIC-50 [Suspect]
     Indication: ILL-DEFINED DISORDER
     Route: 062

REACTIONS (2)
  - INAPPROPRIATE SCHEDULE OF DRUG ADMINISTRATION [None]
  - DRUG PRESCRIBING ERROR [None]
